FAERS Safety Report 8018410-2 (Version None)
Quarter: 2012Q1

REPORT INFORMATION
  Report Type: 
  Country: None (occurrence: None)
  Receive Date: 20120103
  Receipt Date: 20111221
  Transmission Date: 20120608
  Serious: Yes (Life-Threatening, Hospitalization)
  Sender: FDA-Public Use
  Company Number: JP-PFIZER INC-2011268475

PATIENT
  Age: 84 Year
  Sex: Female
  Weight: 46 kg

DRUGS (4)
  1. LIPITOR [Suspect]
     Indication: HYPERCHOLESTEROLAEMIA
     Dosage: 10 MG, 1X/DAY
     Route: 048
     Dates: start: 20110712, end: 20111005
  2. ETIZOLAM [Concomitant]
     Indication: ANXIETY DISORDER
     Dosage: UNK
     Route: 048
  3. YODEL [Concomitant]
     Indication: CONSTIPATION
     Dosage: UNK
  4. ASPIRIN [Concomitant]
     Indication: PROPHYLAXIS
     Dosage: UNK
     Route: 048

REACTIONS (1)
  - ADULT T-CELL LYMPHOMA/LEUKAEMIA [None]
